FAERS Safety Report 6192700-0 (Version None)
Quarter: 2009Q2

REPORT INFORMATION
  Report Type: 
  Country: None (occurrence: None)
  Receive Date: 20090514
  Receipt Date: 20090514
  Transmission Date: 20091009
  Serious: Yes (Hospitalization)
  Sender: FDA-Public Use
  Company Number: None

PATIENT
  Sex: Female
  Weight: 63.05 kg

DRUGS (3)
  1. ZOMETA [Suspect]
     Dosage: 4 MG
  2. QUADRAMET [Suspect]
     Dosage: 59.5 MCI
  3. VITAMIN D [Suspect]
     Dosage: 400 IU

REACTIONS (5)
  - BRONCHIAL DISORDER [None]
  - DYSPNOEA [None]
  - LUNG INFILTRATION [None]
  - PLEURAL EFFUSION [None]
  - PYREXIA [None]
